FAERS Safety Report 24742592 (Version 1)
Quarter: 2024Q4

REPORT INFORMATION
  Report Type: Spontaneous
  Country: US (occurrence: None)
  Receive Date: 20241214
  Receipt Date: 20241214
  Transmission Date: 20250114
  Serious: Yes (Other)
  Sender: Public
  Company Number: None

PATIENT
  Age: 70 Year
  Sex: Male
  Weight: 81.45 kg

DRUGS (1)
  1. NEXLETOL [Suspect]
     Active Substance: BEMPEDOIC ACID
     Indication: Blood cholesterol abnormal
     Dosage: OTHER QUANTITY : 90 TABLET(S);?
     Route: 048
     Dates: start: 20240903, end: 20241113

REACTIONS (7)
  - Tendon disorder [None]
  - Osteoarthritis [None]
  - Osteoarthritis [None]
  - Bursitis [None]
  - Bursitis [None]
  - Tendon pain [None]
  - Tendon injury [None]

NARRATIVE: CASE EVENT DATE: 20240908
